FAERS Safety Report 5814934-4 (Version None)
Quarter: 2008Q3

REPORT INFORMATION
  Report Type: 
  Country: None (occurrence: None)
  Receive Date: 20080718
  Receipt Date: 20080711
  Transmission Date: 20090109
  Serious: Yes (Other)
  Sender: FDA-Public Use
  Company Number: PHBS2008SE05049

PATIENT
  Sex: Female

DRUGS (2)
  1. DICLOFENAC [Suspect]
     Dosage: 50 MG, ONCE/SINGLE
  2. DIAZEPAM [Suspect]
     Dosage: 5 MG, ONCE/SINGLE

REACTIONS (1)
  - DYSTONIA [None]
